FAERS Safety Report 17164564 (Version 1)
Quarter: 2019Q4

REPORT INFORMATION
  Report Type: Spontaneous
  Country: BE (occurrence: BE)
  Receive Date: 20191217
  Receipt Date: 20191217
  Transmission Date: 20200122
  Serious: Yes (Hospitalization)
  Sender: FDA-Public Use
  Company Number: BE-MYLANLABS-2019M1123153

PATIENT
  Age: 54 Year
  Sex: Female

DRUGS (3)
  1. PYRIDOXAL PHOSPHATE [Suspect]
     Active Substance: PYRIDOXAL PHOSPHATE
     Indication: RHINITIS ALLERGIC
     Dosage: 20 MILLIGRAM, QD (DAILY DOSE: 20MILLIGRAM)
     Route: 048
     Dates: start: 19990305, end: 19990305
  2. RIBOFLAVIN [Suspect]
     Active Substance: RIBOFLAVIN
     Indication: RHINITIS ALLERGIC
     Dosage: 10 MILLIGRAM, QD (DAILY DOSE: 10MILLIGRAM)
     Route: 048
     Dates: start: 19990305, end: 19990305
  3. CETIRIZINE [Suspect]
     Active Substance: CETIRIZINE HYDROCHLORIDE
     Indication: RHINITIS ALLERGIC
     Dosage: 10 MILLIGRAM, QD (DAILY DOSE: 10MILLIGRAM)
     Route: 048
     Dates: start: 19990223, end: 19990305

REACTIONS (5)
  - Malaise [Unknown]
  - Pruritus [Unknown]
  - Shock [Unknown]
  - Rash [Unknown]
  - Nausea [Unknown]

NARRATIVE: CASE EVENT DATE: 1999
